FAERS Safety Report 23405587 (Version 2)
Quarter: 2024Q1

REPORT INFORMATION
  Report Type: Spontaneous
  Country: CN (occurrence: CN)
  Receive Date: 20240116
  Receipt Date: 20240118
  Transmission Date: 20240410
  Serious: Yes (Hospitalization, Other)
  Sender: FDA-Public Use
  Company Number: CN-HUTCHMED LIMITED-HMP2024CN00029

PATIENT
  Age: 51 Year
  Sex: Male
  Weight: 63 kg

DRUGS (14)
  1. FRUQUINTINIB [Suspect]
     Active Substance: FRUQUINTINIB
     Indication: Rectal adenocarcinoma
     Dosage: 5 MILLIGRAM, QD
     Route: 048
     Dates: start: 20231019, end: 20231101
  2. FRUQUINTINIB [Suspect]
     Active Substance: FRUQUINTINIB
     Dosage: 5 MILLIGRAM, QD
     Route: 048
     Dates: start: 20231109, end: 20231111
  3. FRUQUINTINIB [Suspect]
     Active Substance: FRUQUINTINIB
     Dosage: 5 MILLIGRAM, QD
     Route: 048
     Dates: start: 20231129, end: 20231210
  4. FRUQUINTINIB [Suspect]
     Active Substance: FRUQUINTINIB
     Dosage: UNK
     Route: 048
     Dates: start: 20231219
  5. MEFUPARIB HYDROCHLORIDE [Concomitant]
     Active Substance: MEFUPARIB HYDROCHLORIDE
     Indication: Rectal adenocarcinoma
     Dosage: 500 MILLIGRAM, BID
     Route: 048
     Dates: start: 20231019, end: 20231110
  6. MEFUPARIB HYDROCHLORIDE [Concomitant]
     Active Substance: MEFUPARIB HYDROCHLORIDE
     Dosage: 500 MILLIGRAM, QD
     Route: 048
     Dates: start: 20231111, end: 20231111
  7. MEFUPARIB HYDROCHLORIDE [Concomitant]
     Active Substance: MEFUPARIB HYDROCHLORIDE
     Dosage: 500 MILLIGRAM, QD
     Route: 048
     Dates: start: 20231114, end: 20231114
  8. MEFUPARIB HYDROCHLORIDE [Concomitant]
     Active Substance: MEFUPARIB HYDROCHLORIDE
     Dosage: 500 MILLIGRAM, BID
     Route: 048
     Dates: start: 20231115, end: 20231209
  9. MEFUPARIB HYDROCHLORIDE [Concomitant]
     Active Substance: MEFUPARIB HYDROCHLORIDE
     Dosage: 500 MILLIGRAM, QD
     Route: 048
     Dates: start: 20231210, end: 20231210
  10. MEFUPARIB HYDROCHLORIDE [Concomitant]
     Active Substance: MEFUPARIB HYDROCHLORIDE
     Dosage: UNK
     Route: 048
     Dates: start: 20231219
  11. SINTILIMAB [Concomitant]
     Active Substance: SINTILIMAB
     Indication: Rectal adenocarcinoma
     Dosage: 200 MILLIGRAM, Q3WEEKS
     Route: 041
     Dates: start: 20231019
  12. ENTECAVIR [Concomitant]
     Active Substance: ENTECAVIR
     Indication: Viral hepatitis carrier
     Dosage: 1 DOSAGE FORM, QD
     Route: 048
     Dates: start: 202205
  13. OLANZAPINE [Concomitant]
     Active Substance: OLANZAPINE
     Indication: Prophylaxis
     Dosage: 2.5 MILLIGRAM
     Route: 048
     Dates: start: 20231129, end: 20231209
  14. ONDANSETRON HYDROCHLORIDE [Concomitant]
     Active Substance: ONDANSETRON HYDROCHLORIDE
     Indication: Prophylaxis
     Dosage: 8 MILLIGRAM, BID
     Route: 048
     Dates: start: 20231130, end: 20231130

REACTIONS (1)
  - Anal abscess [Recovering/Resolving]

NARRATIVE: CASE EVENT DATE: 20231210
